FAERS Safety Report 8554605-7 (Version None)
Quarter: 2012Q3

REPORT INFORMATION
  Report Type: 
  Country: None (occurrence: None)
  Receive Date: 20120731
  Receipt Date: 20120724
  Transmission Date: 20120928
  Serious: Yes (Hospitalization)
  Sender: FDA-Public Use
  Company Number: US-JNJFOC-20120605639

PATIENT
  Sex: Female
  Weight: 93.44 kg

DRUGS (8)
  1. ASPIRIN [Concomitant]
     Indication: PROPHYLAXIS
  2. XARELTO [Suspect]
     Indication: THROMBOSIS PROPHYLAXIS
     Route: 048
     Dates: start: 20120322, end: 20120327
  3. LEVOTHYROXINE SODIUM [Concomitant]
     Indication: HYPOTHYROIDISM
     Route: 048
  4. LOVENOX [Concomitant]
     Indication: PROPHYLAXIS
     Dosage: DOSE REPORTED EVERY 2 HOURS X 2
     Route: 058
  5. CELEBREX [Concomitant]
     Indication: ARTHRITIS
     Route: 048
  6. DEPAKOTE [Concomitant]
     Indication: CONVULSION
     Route: 048
  7. XARELTO [Suspect]
     Indication: KNEE ARTHROPLASTY
     Route: 048
     Dates: start: 20120322, end: 20120327
  8. CEFAZOLIN [Concomitant]
     Indication: PROPHYLAXIS
     Dosage: DOSE REPORTED AS EVERY 8 HOURS X 3 DOSES
     Route: 042

REACTIONS (4)
  - PULMONARY EMBOLISM [None]
  - DEEP VEIN THROMBOSIS [None]
  - DRUG INEFFECTIVE [None]
  - LUNG NEOPLASM [None]
